FAERS Safety Report 9743719 (Version 1)
Quarter: 2013Q4

REPORT INFORMATION
  Report Type: Spontaneous
  Country: US (occurrence: US)
  Receive Date: 20131210
  Receipt Date: 20131210
  Transmission Date: 20140711
  Serious: No
  Sender: FDA-Public Use
  Company Number: US-BIOGENIDEC-2013BI094642

PATIENT
  Age: 48 Year
  Sex: Female

DRUGS (4)
  1. TECFIDERA [Suspect]
     Indication: MULTIPLE SCLEROSIS
     Route: 048
     Dates: start: 201307
  2. TECFIDERA [Suspect]
     Indication: MULTIPLE SCLEROSIS
     Route: 048
  3. VESICARE [Concomitant]
     Indication: PRODUCT USED FOR UNKNOWN INDICATION
  4. VITAMIN B-12 [Concomitant]
     Indication: PRODUCT USED FOR UNKNOWN INDICATION

REACTIONS (13)
  - Amnesia [Unknown]
  - Wheezing [Unknown]
  - Asthenia [Unknown]
  - Eye pain [Unknown]
  - Facial pain [Unknown]
  - Headache [Unknown]
  - Depression [Unknown]
  - Visual impairment [Unknown]
  - Depressed mood [Unknown]
  - Feeling of despair [Unknown]
  - Abdominal pain upper [Unknown]
  - Flushing [Unknown]
  - Dyspepsia [Unknown]
